FAERS Safety Report 6077483-7 (Version None)
Quarter: 2009Q1

REPORT INFORMATION
  Report Type: 
  Country: None (occurrence: None)
  Receive Date: 20090213
  Receipt Date: 20081212
  Transmission Date: 20090719
  Serious: No
  Sender: FDA-Public Use
  Company Number: A0760176A

PATIENT
  Age: 46 Year
  Sex: Female

DRUGS (6)
  1. TREXIMET [Suspect]
     Indication: MIGRAINE
     Dosage: 1TAB AS REQUIRED
     Route: 048
     Dates: start: 20081211
  2. TOPAMAX [Concomitant]
  3. CYMBALTA [Concomitant]
  4. BUPROPION HCL [Concomitant]
  5. DIAZEPAM [Concomitant]
  6. EXCEDRIN [Concomitant]

REACTIONS (1)
  - DRUG INEFFECTIVE [None]
